FAERS Safety Report 10462482 (Version 3)
Quarter: 2015Q1

REPORT INFORMATION
  Report Type: Report from Study
  Country: CN (occurrence: CN)
  Receive Date: 20140918
  Receipt Date: 20150113
  Transmission Date: 20150720
  Serious: Yes (Death, Other)
  Sender: FDA-Public Use
  Company Number: PHHY2014CN120603

PATIENT
  Age: 34 Year
  Sex: Female

DRUGS (2)
  1. GLIVEC [Suspect]
     Active Substance: IMATINIB MESYLATE
     Indication: ACUTE LYMPHOCYTIC LEUKAEMIA
     Dosage: 400 MG, QD
     Route: 048
     Dates: start: 20131121, end: 201408
  2. GLIVEC [Suspect]
     Active Substance: IMATINIB MESYLATE
     Indication: GASTROINTESTINAL NEOPLASM

REACTIONS (5)
  - Lung infection [Unknown]
  - Acute lymphocytic leukaemia recurrent [Unknown]
  - Lung infiltration [Unknown]
  - Treatment failure [Fatal]
  - CSF protein increased [Unknown]

NARRATIVE: CASE EVENT DATE: 201407
